FAERS Safety Report 4873033-9 (Version None)
Quarter: 2006Q1

REPORT INFORMATION
  Report Type: 
  Country: None (occurrence: None)
  Receive Date: 20060105
  Receipt Date: 20051228
  Transmission Date: 20060701
  Serious: Yes (Hospitalization, Other)
  Sender: FDA-Public Use
  Company Number: US-AMGEN-US161342

PATIENT
  Sex: Female
  Weight: 54.2 kg

DRUGS (20)
  1. ARANESP [Suspect]
     Indication: RENAL FAILURE CHRONIC
     Route: 058
     Dates: start: 20050812, end: 20051214
  2. EPOGEN [Suspect]
     Indication: RENAL FAILURE CHRONIC
     Dates: end: 20050801
  3. RIFAMPIN [Concomitant]
  4. ALKERAN [Concomitant]
     Route: 048
  5. MINOCYCLINE HCL [Concomitant]
     Route: 048
  6. LORAZEPAM [Concomitant]
     Route: 048
  7. ZOFRAN [Concomitant]
     Route: 048
  8. ZOLOFT [Concomitant]
     Route: 048
  9. COMPAZINE [Concomitant]
     Route: 048
  10. TRAZODONE [Concomitant]
     Route: 048
  11. FOLIC ACID [Concomitant]
     Route: 048
  12. NEPHRO-CAPS [Concomitant]
     Route: 048
  13. MIDODRINE HCL [Concomitant]
     Route: 048
  14. LEVOXYL [Concomitant]
     Route: 048
  15. ZOCOR [Concomitant]
     Route: 048
  16. PROTONIX [Concomitant]
     Route: 048
  17. VITAMIN B6 [Concomitant]
     Route: 048
  18. ACIDOPHILUS [Concomitant]
     Route: 048
  19. NEURONTIN [Concomitant]
     Route: 048
  20. FENTANYL [Concomitant]
     Route: 061

REACTIONS (7)
  - CHOLANGITIS [None]
  - DRUG INEFFECTIVE [None]
  - HAEMOTHORAX [None]
  - KLEBSIELLA INFECTION [None]
  - PANCREATITIS [None]
  - POST PROCEDURAL COMPLICATION [None]
  - URINARY TRACT INFECTION BACTERIAL [None]
